FAERS Safety Report 9224818 (Version 1)
Quarter: 2013Q2

REPORT INFORMATION
  Report Type: Spontaneous
  Country: CH (occurrence: CH)
  Receive Date: 20130411
  Receipt Date: 20130411
  Transmission Date: 20140414
  Serious: Yes (Hospitalization)
  Sender: FDA-Public Use
  Company Number: CH-SANOFI-AVENTIS-2013SA036341

PATIENT
  Age: 87 Year
  Sex: Female
  Weight: 65 kg

DRUGS (13)
  1. FUROSEMIDE [Suspect]
     Indication: CARDIAC FAILURE
     Route: 048
  2. DIGOXINE [Suspect]
     Indication: ATRIAL FIBRILLATION
     Route: 048
     Dates: start: 20130219, end: 20130319
  3. DIGOXINE [Suspect]
     Indication: ATRIAL FLUTTER
     Route: 048
     Dates: start: 20130219, end: 20130319
  4. LISINOPRIL [Suspect]
     Indication: CARDIAC FAILURE
     Route: 048
  5. TORASEMIDE [Suspect]
     Indication: CARDIAC FAILURE
     Route: 048
  6. ASPIRINE [Concomitant]
     Indication: MYOCARDIAL ISCHAEMIA
     Route: 048
  7. SINTROM [Concomitant]
     Route: 048
  8. METOPROLOL [Concomitant]
     Indication: ATRIAL FIBRILLATION
     Route: 048
  9. METOPROLOL [Concomitant]
     Indication: ATRIAL FLUTTER
     Route: 048
  10. SIMVASTATIN [Concomitant]
     Indication: MYOCARDIAL ISCHAEMIA
     Route: 048
  11. LEVOTHYROXINE [Concomitant]
     Indication: HYPOTHYROIDISM
     Route: 048
  12. FOLIC ACID [Concomitant]
     Indication: ANAEMIA FOLATE DEFICIENCY
     Route: 048
  13. CLOMETHIAZOLE [Concomitant]
     Indication: INSOMNIA
     Route: 048

REACTIONS (11)
  - Chromatopsia [Recovered/Resolved]
  - Drug interaction [Recovered/Resolved]
  - Delirium [Recovered/Resolved]
  - Weight decreased [Recovered/Resolved]
  - Fall [Recovered/Resolved]
  - Renal failure acute [Recovered/Resolved]
  - Dehydration [Recovered/Resolved]
  - Nausea [Recovered/Resolved]
  - Vomiting [Recovered/Resolved]
  - Therapeutic response increased [Recovered/Resolved]
  - Medication error [Unknown]
